FAERS Safety Report 15631644 (Version 1)
Quarter: 2018Q4

REPORT INFORMATION
  Report Type: Spontaneous
  Country: US (occurrence: US)
  Receive Date: 20181118
  Receipt Date: 20181118
  Transmission Date: 20190205
  Serious: Yes (Disabling)
  Sender: FDA-Public Use
  Company Number: None

PATIENT
  Age: 39 Year
  Sex: Female
  Weight: 57.6 kg

DRUGS (1)
  1. AJOVY [Suspect]
     Active Substance: FREMANEZUMAB-VFRM
     Indication: PROPHYLAXIS
     Dosage: ?          QUANTITY:1 INJECTION(S);OTHER FREQUENCY:ONCE EVERY 28 DAYS;?
     Route: 058
     Dates: start: 20181012, end: 20181109

REACTIONS (9)
  - Abdominal distension [None]
  - Fatigue [None]
  - Nausea [None]
  - Diarrhoea [None]
  - Bone pain [None]
  - Flatulence [None]
  - Arrhythmia [None]
  - Peptic ulcer [None]
  - Constipation [None]

NARRATIVE: CASE EVENT DATE: 20181022
